FAERS Safety Report 8010815-9 (Version None)
Quarter: 2011Q4

REPORT INFORMATION
  Report Type: 
  Country: None (occurrence: None)
  Receive Date: 20111222
  Receipt Date: 20111215
  Transmission Date: 20120403
  Serious: Yes (Hospitalization)
  Sender: FDA-Public Use
  Company Number: 2011PL000209

PATIENT
  Age: 73 Year
  Sex: Male

DRUGS (9)
  1. PREDNISONE TAB [Concomitant]
  2. ALBUTEROL SULFATE AUTOHALER [Concomitant]
  3. ASPIRIN [Concomitant]
  4. ATORVASTATIN [Concomitant]
  5. LOSARTAN POTASSIUM [Concomitant]
  6. HYDROCHLOROTHIAZIDE [Concomitant]
  7. IPRATROPIUM BROMIDE [Concomitant]
  8. AZATHIOPRINE [Suspect]
     Indication: TRANSPLANT REJECTION
     Dosage: 50 MG; QD
  9. FLUTICASONE PROPIONATE/SALMETEROL [Concomitant]

REACTIONS (2)
  - HEPATITIS CHOLESTATIC [None]
  - PYREXIA [None]
